FAERS Safety Report 13516607 (Version 2)
Quarter: 2017Q2

REPORT INFORMATION
  Report Type: Spontaneous
  Country: US (occurrence: US)
  Receive Date: 20170505
  Receipt Date: 20170601
  Transmission Date: 20170830
  Serious: Yes (Hospitalization, Other)
  Sender: FDA-Public Use
  Company Number: US-009507513-1704USA014974

PATIENT
  Sex: Male

DRUGS (4)
  1. REBETOL [Suspect]
     Active Substance: RIBAVIRIN
     Indication: HEPATITIS C
     Dosage: UNK, FIRST ROUND
     Route: 048
  2. PEGINTRON [Suspect]
     Active Substance: PEGINTERFERON ALFA-2B
     Dosage: UNK, SECOND ROUND
  3. REBETOL [Suspect]
     Active Substance: RIBAVIRIN
     Dosage: UNK, SECOND ROUND
     Route: 048
  4. PEGINTRON [Suspect]
     Active Substance: PEGINTERFERON ALFA-2B
     Indication: HEPATITIS C
     Dosage: UNK, FIRST ROUND

REACTIONS (3)
  - Renal transplant failure [Unknown]
  - Treatment failure [Unknown]
  - Renal transplant [Unknown]

NARRATIVE: CASE EVENT DATE: 2011
